FAERS Safety Report 7045991-8 (Version None)
Quarter: 2010Q4

REPORT INFORMATION
  Report Type: 
  Country: None (occurrence: None)
  Receive Date: 20101014
  Receipt Date: 20101004
  Transmission Date: 20110411
  Serious: Yes (Other)
  Sender: FDA-Public Use
  Company Number: CO-PFIZER INC-2010125962

PATIENT
  Age: 8 Year
  Sex: Male

DRUGS (1)
  1. GENOTROPIN [Suspect]
     Indication: GROWTH RETARDATION
     Dosage: 0.7 MG, 1X/DAY
     Route: 058
     Dates: start: 20100226

REACTIONS (3)
  - NEOPLASM [None]
  - PYREXIA [None]
  - SWELLING [None]
